FAERS Safety Report 9952006 (Version 1)
Quarter: 2014Q1

REPORT INFORMATION
  Report Type: Spontaneous
  Country: US (occurrence: US)
  Receive Date: 20140304
  Receipt Date: 20140304
  Transmission Date: 20141002
  Serious: No
  Sender: FDA-Public Use
  Company Number: US-AMGEN-USASP2013081722

PATIENT
  Age: 52 Year
  Sex: Female
  Weight: 57.6 kg

DRUGS (5)
  1. ENBREL [Suspect]
     Indication: RHEUMATOID ARTHRITIS
     Dosage: 50 MG, QWK
     Route: 058
  2. ZYRTEC [Concomitant]
     Dosage: 10 MG, UNK
  3. VICODIN [Concomitant]
     Dosage: 5-500 MG, UNK
  4. VITAMIN D                          /00107901/ [Concomitant]
     Dosage: 2000 UNIT, UNK
  5. AZITHROMYCIN [Concomitant]
     Dosage: 250 MG, UNK

REACTIONS (3)
  - Oropharyngeal pain [Unknown]
  - Fatigue [Unknown]
  - Upper respiratory tract infection [Unknown]
